FAERS Safety Report 6010431-4 (Version None)
Quarter: 2008Q4

REPORT INFORMATION
  Report Type: 
  Country: None (occurrence: None)
  Receive Date: 20081218
  Receipt Date: 20071212
  Transmission Date: 20090506
  Serious: No
  Sender: FDA-Public Use
  Company Number: US-AMGEN-KDL256593

PATIENT
  Sex: Female

DRUGS (2)
  1. ENBREL [Suspect]
     Indication: ANKYLOSING SPONDYLITIS
     Route: 058
     Dates: start: 20070925
  2. SULFASALAZINE [Concomitant]
     Route: 048
     Dates: start: 20061001

REACTIONS (2)
  - JOINT SWELLING [None]
  - PAIN [None]
